FAERS Safety Report 7746545-8 (Version None)
Quarter: 2011Q3

REPORT INFORMATION
  Report Type: 
  Country: None (occurrence: None)
  Receive Date: 20110913
  Receipt Date: 20110907
  Transmission Date: 20111222
  Serious: Yes (Death, Life-Threatening, Disabling, Other)
  Sender: FDA-Public Use
  Company Number: DE-ABBOTT-11P-062-0845559-00

PATIENT
  Sex: Female

DRUGS (11)
  1. HUMIRA [Suspect]
     Indication: RHEUMATOID ARTHRITIS
     Route: 058
     Dates: start: 20100615, end: 20110404
  2. PREDNISOLONE [Concomitant]
     Indication: RHEUMATOID ARTHRITIS
  3. FAUSTAN [Concomitant]
     Indication: PRODUCT USED FOR UNKNOWN INDICATION
     Route: 048
  4. FUROSEMIDE [Concomitant]
     Indication: ADVERSE DRUG REACTION
  5. METOPROLOL SUCCINATE [Concomitant]
     Indication: TACHYCARDIA
  6. SODERM [Concomitant]
     Indication: PRODUCT USED FOR UNKNOWN INDICATION
  7. CALCIUM CARBONATE [Concomitant]
     Indication: PRODUCT USED FOR UNKNOWN INDICATION
     Dates: start: 20110518
  8. ACETAMINOPHEN [Concomitant]
     Indication: PRODUCT USED FOR UNKNOWN INDICATION
     Dates: start: 20110518
  9. TETRAZEPAM [Concomitant]
     Indication: RHEUMATOID ARTHRITIS
  10. PALLODON [Concomitant]
     Indication: RHEUMATOID ARTHRITIS
  11. FEXOFENADIN [Concomitant]
     Indication: RASH

REACTIONS (7)
  - AGRANULOCYTOSIS [None]
  - DRUG INEFFECTIVE [None]
  - URINARY TRACT INFECTION [None]
  - MULTI-ORGAN FAILURE [None]
  - SEPTIC SHOCK [None]
  - JOINT ANKYLOSIS [None]
  - STREPTOCOCCAL SEPSIS [None]
